FAERS Safety Report 6725099-9 (Version None)
Quarter: 2010Q2

REPORT INFORMATION
  Report Type: 
  Country: None (occurrence: None)
  Receive Date: 20100514
  Receipt Date: 20100426
  Transmission Date: 20101027
  Serious: Yes (Other)
  Sender: FDA-Public Use
  Company Number: US-BAYER-201014976NA

PATIENT
  Age: 25 Year
  Sex: Female
  Weight: 57 kg

DRUGS (7)
  1. YAZ [Suspect]
     Indication: DRUG USE FOR UNKNOWN INDICATION
     Route: 048
     Dates: start: 20070601, end: 20090301
  2. OCELLA [Suspect]
     Indication: DRUG USE FOR UNKNOWN INDICATION
     Route: 048
     Dates: start: 20070101, end: 20090101
  3. EXCEDRIN (MIGRAINE) [Concomitant]
     Route: 065
  4. NSAIDS [Concomitant]
     Route: 065
  5. TORADOL [Concomitant]
     Indication: GALLBLADDER DISORDER
     Route: 065
  6. NUBAIN [Concomitant]
  7. VICODIN [Concomitant]
     Indication: GALLBLADDER DISORDER

REACTIONS (6)
  - ABDOMINAL PAIN UPPER [None]
  - CHOLELITHIASIS [None]
  - DYSPEPSIA [None]
  - GASTROOESOPHAGEAL REFLUX DISEASE [None]
  - NAUSEA [None]
  - WEIGHT DECREASED [None]
